FAERS Safety Report 6170499-1 (Version None)
Quarter: 2009Q2

REPORT INFORMATION
  Report Type: 
  Country: None (occurrence: None)
  Receive Date: 20090427
  Receipt Date: 20090427
  Transmission Date: 20091009
  Serious: Yes (Life-Threatening)
  Sender: FDA-Public Use
  Company Number: None

PATIENT
  Age: 69 Year
  Sex: Male
  Weight: 102.7 kg

DRUGS (14)
  1. RISPERDAL [Suspect]
     Indication: AGITATION
     Dosage: 0.5 MG PO / 0.25 MG PO QHS
     Route: 048
     Dates: start: 20081014, end: 20081015
  2. RISPERDAL [Suspect]
     Indication: MENTAL STATUS CHANGES
     Dosage: 0.5 MG PO / 0.25 MG PO QHS
     Route: 048
     Dates: start: 20081014, end: 20081015
  3. RISPERDAL [Suspect]
     Indication: AGITATION
     Dosage: 0.5 MG PO / 0.25 MG PO QHS
     Route: 048
     Dates: start: 20081013
  4. RISPERDAL [Suspect]
     Indication: MENTAL STATUS CHANGES
     Dosage: 0.5 MG PO / 0.25 MG PO QHS
     Route: 048
     Dates: start: 20081013
  5. WARFARIN [Concomitant]
  6. ASPIRIN [Concomitant]
  7. ATORVASTATIN [Concomitant]
  8. CLOPIDOGREL [Concomitant]
  9. COLCHICINE [Concomitant]
  10. DOCUSATE [Concomitant]
  11. INSULIN [Concomitant]
  12. LANSOPRAZOLE [Concomitant]
  13. LEVOTHYROXINE SODIUM [Concomitant]
  14. METOPROLOL [Concomitant]

REACTIONS (2)
  - ELECTROCARDIOGRAM QT PROLONGED [None]
  - VENTRICULAR TACHYCARDIA [None]
